FAERS Safety Report 7793487-8 (Version None)
Quarter: 2011Q4

REPORT INFORMATION
  Report Type: 
  Country: None (occurrence: None)
  Receive Date: 20111003
  Receipt Date: 20110427
  Transmission Date: 20120403
  Serious: No
  Sender: FDA-Public Use
  Company Number: US-BAYER-2011-037103

PATIENT

DRUGS (1)
  1. CIPRO [Suspect]

REACTIONS (2)
  - DYSGEUSIA [None]
  - PAROSMIA [None]
